FAERS Safety Report 25529786 (Version 1)
Quarter: 2025Q3

REPORT INFORMATION
  Report Type: Spontaneous
  Country: US (occurrence: US)
  Receive Date: 20250708
  Receipt Date: 20250708
  Transmission Date: 20251021
  Serious: No
  Sender: NOVARTIS
  Company Number: US-002147023-NVSC2025US105523

PATIENT
  Sex: Male

DRUGS (2)
  1. PROMACTA [Suspect]
     Active Substance: ELTROMBOPAG OLAMINE
     Indication: Thrombocytopenia
     Dosage: 50 MG, QD
     Route: 048
     Dates: start: 202502
  2. ELTROMBOPAG [Concomitant]
     Active Substance: ELTROMBOPAG
     Indication: Product used for unknown indication
     Route: 065

REACTIONS (2)
  - Blister [Unknown]
  - Rash [Unknown]
